FAERS Safety Report 4542936-7 (Version None)
Quarter: 2004Q4

REPORT INFORMATION
  Report Type: 
  Country: None (occurrence: None)
  Receive Date: 20041229
  Receipt Date: 20041122
  Transmission Date: 20050328
  Serious: Yes (Other)
  Sender: FDA-Public Use
  Company Number: 04-27/130-05

PATIENT
  Sex: Female

DRUGS (1)
  1. DEXTROAMPHETAMINE AND AMPHETAMINE SALTS TABLETS 5 MG [Suspect]
     Dosage: 5 MG  2 TAB AM ORAL   2 TAB PM
     Route: 048
     Dates: start: 20041118, end: 20041119

REACTIONS (2)
  - HYPERSENSITIVITY [None]
  - PHARMACEUTICAL PRODUCT COMPLAINT [None]
